FAERS Safety Report 8210045-1 (Version None)
Quarter: 2012Q1

REPORT INFORMATION
  Report Type: 
  Country: None (occurrence: None)
  Receive Date: 20120314
  Receipt Date: 20110615
  Transmission Date: 20120608
  Serious: No
  Sender: FDA-Public Use
  Company Number: US-ASTRAZENECA-2011SE36547

PATIENT
  Age: 62 Year
  Sex: Female
  Weight: 70.3 kg

DRUGS (3)
  1. TOPROL-XL [Suspect]
     Route: 048
     Dates: end: 20110601
  2. TOPROL-XL [Suspect]
     Route: 048
     Dates: end: 20110101
  3. ESTROGEN [Concomitant]

REACTIONS (2)
  - BLOOD PRESSURE INCREASED [None]
  - DRUG INEFFECTIVE [None]
